FAERS Safety Report 9960405 (Version 1)
Quarter: 2014Q1

REPORT INFORMATION
  Report Type: Spontaneous
  Country: US (occurrence: US)
  Receive Date: 20140305
  Receipt Date: 20140305
  Transmission Date: 20141002
  Serious: No
  Sender: FDA-Public Use
  Company Number: US-ABBVIE-13P-163-1104593-00

PATIENT
  Age: 25 Year
  Sex: Female
  Weight: 111.23 kg

DRUGS (6)
  1. HUMIRA [Suspect]
     Indication: PSORIATIC ARTHROPATHY
     Dates: start: 201303
  2. LISINOPRIL [Concomitant]
     Indication: HYPERTENSION
  3. UNNAMED BIRTH CONTROL PILLS [Concomitant]
     Indication: CONTRACEPTION
  4. TYLENOL [Concomitant]
     Indication: PAIN
  5. TYLENOL [Concomitant]
     Indication: SLEEP DISORDER THERAPY
  6. ALEVE [Concomitant]
     Indication: PSORIATIC ARTHROPATHY
     Dosage: IN A.M.

REACTIONS (4)
  - Pain [Not Recovered/Not Resolved]
  - Pain [Not Recovered/Not Resolved]
  - Incorrect dose administered [Not Recovered/Not Resolved]
  - Product quality issue [Not Recovered/Not Resolved]
